FAERS Safety Report 5018865-1 (Version None)
Quarter: 2006Q2

REPORT INFORMATION
  Report Type: 
  Country: None (occurrence: None)
  Receive Date: 20060606
  Receipt Date: 20060529
  Transmission Date: 20061013
  Serious: Yes (Hospitalization)
  Sender: FDA-Public Use
  Company Number: DZ-AVENTIS-200615755GDDC

PATIENT
  Age: 56 Year
  Sex: Female
  Weight: 70 kg

DRUGS (4)
  1. ARAVA [Suspect]
     Route: 048
     Dates: start: 20060518, end: 20060523
  2. SALBUTAMOL [Concomitant]
     Indication: ASTHMA
     Dosage: DOSE: UNK
     Dates: start: 20010101
  3. PREDNISONE [Concomitant]
     Indication: RHEUMATOID ARTHRITIS
     Dosage: DOSE: UNK
     Route: 048
     Dates: start: 20030101
  4. DICLOFENAC POTASSIUM [Concomitant]
     Indication: RHEUMATOID ARTHRITIS
     Route: 048
     Dates: start: 20030101

REACTIONS (1)
  - BRONCHOSPASM [None]
